FAERS Safety Report 17082591 (Version 1)
Quarter: 2019Q4

REPORT INFORMATION
  Report Type: Spontaneous
  Country: FR (occurrence: FR)
  Receive Date: 20191127
  Receipt Date: 20191127
  Transmission Date: 20200122
  Serious: Yes (Life-Threatening, Hospitalization)
  Sender: FDA-Public Use
  Company Number: FR-MYLANLABS-2019M1115657

PATIENT
  Age: 45 Year
  Sex: Female

DRUGS (3)
  1. MIDAZOLAM [Suspect]
     Active Substance: MIDAZOLAM HYDROCHLORIDE
     Indication: ANEURYSM
     Dosage: 7 MILLIGRAM, TOTAL
     Route: 042
     Dates: start: 20190617
  2. PROPOFOL. [Suspect]
     Active Substance: PROPOFOL
     Indication: ANEURYSM
     Dosage: 25 MILLIGRAM, TOTAL
     Route: 042
     Dates: start: 20190617
  3. KETAMINE PANPHARMA [Suspect]
     Active Substance: KETAMINE
     Indication: ANEURYSM
     Dosage: 35 MILLIGRAM, TOTAL
     Route: 042
     Dates: start: 20190617

REACTIONS (1)
  - Acute pulmonary oedema [Recovered/Resolved]

NARRATIVE: CASE EVENT DATE: 20190617
